FAERS Safety Report 11276643 (Version 2)
Quarter: 2015Q4

REPORT INFORMATION
  Report Type: Spontaneous
  Country: JP (occurrence: JP)
  Receive Date: 20150716
  Receipt Date: 20151111
  Transmission Date: 20160304
  Serious: Yes (Death, Hospitalization)
  Sender: FDA-Public Use
  Company Number: JP-ELI_LILLY_AND_COMPANY-JP201507003811

PATIENT
  Age: 51 Year
  Sex: Male

DRUGS (4)
  1. RANDA [Suspect]
     Active Substance: CISPLATIN
     Indication: LUNG ADENOCARCINOMA
     Dosage: 120 MG, UNK
     Route: 065
     Dates: start: 20150218, end: 20150501
  2. RANMARK [Suspect]
     Active Substance: DENOSUMAB
     Indication: METASTASES TO BONE
     Dosage: 120 MG, UNK
     Route: 065
     Dates: start: 20150612, end: 20150612
  3. ALIMTA [Suspect]
     Active Substance: PEMETREXED DISODIUM
     Dosage: 800 MG, UNK
     Route: 042
     Dates: start: 20150522, end: 20150612
  4. ALIMTA [Suspect]
     Active Substance: PEMETREXED DISODIUM
     Indication: LUNG ADENOCARCINOMA
     Dosage: 800 MG, UNK
     Route: 042
     Dates: start: 20150218, end: 20150501

REACTIONS (1)
  - Tachyarrhythmia [Fatal]
